FAERS Safety Report 6883479-5 (Version None)
Quarter: 2010Q3

REPORT INFORMATION
  Report Type: 
  Country: None (occurrence: None)
  Receive Date: 20100729
  Receipt Date: 20100719
  Transmission Date: 20110219
  Serious: Yes (Life-Threatening, Hospitalization, Other)
  Sender: FDA-Public Use
  Company Number: GB-MERCK-1005GBR00093

PATIENT
  Age: 46 Year
  Sex: Female

DRUGS (21)
  1. ZOCOR [Suspect]
     Indication: DIABETES MELLITUS
     Route: 048
  2. ZOCOR [Suspect]
     Route: 048
  3. FUSIDIC ACID [Suspect]
     Indication: ARTHRITIS BACTERIAL
     Route: 065
  4. FUSIDIC ACID [Suspect]
     Indication: INFECTION
     Route: 065
  5. INSULIN, BIPHASIC ISOPHANE [INJECTION] [Concomitant]
     Indication: DIABETES MELLITUS
     Route: 065
  6. PENICILLIN V [Concomitant]
     Route: 065
  7. FLOXACILLIN [Concomitant]
     Route: 065
  8. GENTAMICIN [Concomitant]
     Route: 065
  9. WARFARIN [Concomitant]
     Route: 065
  10. ASPIRIN [Concomitant]
     Route: 065
  11. CLONAZEPAM [Concomitant]
     Route: 065
  12. DILTIAZEM HYDROCHLORIDE [Concomitant]
     Route: 065
  13. SERTRALINE HYDROCHLORIDE [Concomitant]
     Route: 065
  14. NICORANDIL [Concomitant]
     Route: 065
  15. ALUMINUM HYDROXIDE [Concomitant]
     Route: 065
  16. CALCIUM ACETATE [Concomitant]
     Route: 065
  17. IRON SUCROSE [Concomitant]
     Route: 065
  18. EPOETIN [Concomitant]
     Route: 065
  19. ALFACALCIDOL [Concomitant]
     Route: 065
  20. ASCORBIC ACID AND VITAMIN B (UNSPECIFIED) [Concomitant]
     Route: 065
  21. FOLIC ACID [Concomitant]
     Route: 065

REACTIONS (6)
  - BLOOD CREATINE PHOSPHOKINASE INCREASED [None]
  - DRUG INTERACTION [None]
  - HYPOTONIA [None]
  - MUSCULAR WEAKNESS [None]
  - PARAPARESIS [None]
  - RHABDOMYOLYSIS [None]
